FAERS Safety Report 8415816-4 (Version None)
Quarter: 2012Q2

REPORT INFORMATION
  Report Type: 
  Country: None (occurrence: None)
  Receive Date: 20120606
  Receipt Date: 20120531
  Transmission Date: 20120825
  Serious: Yes (Disabling)
  Sender: FDA-Public Use
  Company Number: US-BAYER-2012-054276

PATIENT
  Age: 19 Year
  Sex: Female

DRUGS (1)
  1. BETASERON [Suspect]
     Indication: MULTIPLE SCLEROSIS
     Dosage: 2 MIU, QOD
     Dates: start: 20120517

REACTIONS (5)
  - INJECTION SITE PAIN [None]
  - FATIGUE [None]
  - AGITATION [None]
  - PAIN IN EXTREMITY [None]
  - FEELING HOT [None]
